FAERS Safety Report 6203372-0 (Version None)
Quarter: 2009Q2

REPORT INFORMATION
  Report Type: 
  Country: None (occurrence: None)
  Receive Date: 20090521
  Receipt Date: 20090506
  Transmission Date: 20091009
  Serious: Yes (Other)
  Sender: FDA-Public Use
  Company Number: 2009001412

PATIENT
  Age: 60 Year
  Sex: Female

DRUGS (2)
  1. TARCEVA [Suspect]
     Indication: LUNG CANCER METASTATIC
     Dosage: (150 MG),ORAL ; (100 MG,QD),ORAL
     Route: 048
     Dates: start: 20081020
  2. SINTROM [Suspect]
     Dates: start: 20070101

REACTIONS (6)
  - BLOOD BILIRUBIN INCREASED [None]
  - COAGULOPATHY [None]
  - DRUG INEFFECTIVE [None]
  - DRUG INTERACTION [None]
  - INTERNATIONAL NORMALISED RATIO DECREASED [None]
  - TRANSAMINASES INCREASED [None]
